FAERS Safety Report 6869758-6 (Version None)
Quarter: 2010Q3

REPORT INFORMATION
  Report Type: 
  Country: None (occurrence: None)
  Receive Date: 20100722
  Receipt Date: 20080916
  Transmission Date: 20110219
  Serious: Yes (Other)
  Sender: FDA-Public Use
  Company Number: US-PFIZER INC-2008067823

PATIENT
  Sex: Female
  Weight: 59 kg

DRUGS (5)
  1. CHANTIX [Suspect]
     Indication: SMOKING CESSATION THERAPY
     Dates: start: 20080729, end: 20080808
  2. CELEXA [Concomitant]
     Dates: end: 20080101
  3. FIORICET [Concomitant]
     Indication: HEADACHE
     Dates: end: 20080101
  4. FLEXERIL [Concomitant]
     Dates: end: 20080101
  5. LYRICA [Concomitant]
     Indication: FIBROMYALGIA
     Dates: start: 20080716, end: 20080101

REACTIONS (1)
  - CONVULSION [None]
